FAERS Safety Report 21372057 (Version 1)
Quarter: 2022Q3

REPORT INFORMATION
  Report Type: Report from Study
  Country: US (occurrence: US)
  Receive Date: 20220923
  Receipt Date: 20220923
  Transmission Date: 20221027
  Serious: Yes (Hospitalization, Other)
  Sender: FDA-Public Use
  Company Number: US-BRISTOL-MYERS SQUIBB COMPANY-2022-109164

PATIENT
  Age: 61 Year
  Sex: Male
  Weight: 80.4 kg

DRUGS (10)
  1. NIVOLUMAB [Suspect]
     Active Substance: NIVOLUMAB
     Indication: Prostate cancer metastatic
     Dosage: 360 MG ONCE
     Route: 042
     Dates: start: 20220512, end: 20220623
  2. DOCETAXEL [Suspect]
     Active Substance: DOCETAXEL
     Indication: Prostate cancer metastatic
     Dosage: 75 MG ONCE
     Route: 042
     Dates: start: 20220728, end: 20220728
  3. SODIUM CHLORIDE [Concomitant]
     Active Substance: SODIUM CHLORIDE
     Indication: Prostate cancer metastatic
     Route: 042
     Dates: start: 20220623
  4. DEXTROSE [Concomitant]
     Active Substance: DEXTROSE
     Indication: Prostate cancer metastatic
     Dosage: DEXTROSE 5% IN WATER (258.5)
     Route: 042
  5. NYSTATIN [Concomitant]
     Active Substance: NYSTATIN
     Indication: Product used for unknown indication
     Route: 065
     Dates: start: 20220805
  6. DIPHENHYDRAMINE [Concomitant]
     Active Substance: DIPHENHYDRAMINE
     Indication: Product used for unknown indication
     Route: 065
     Dates: start: 20220905
  7. APIXABAN [Concomitant]
     Active Substance: APIXABAN
     Indication: Product used for unknown indication
     Route: 048
     Dates: start: 20220710
  8. VITAMIN D2 [Concomitant]
     Active Substance: ERGOCALCIFEROL
     Indication: Product used for unknown indication
     Route: 048
     Dates: start: 20220210
  9. LOPERAMIDE [Concomitant]
     Active Substance: LOPERAMIDE
     Indication: Product used for unknown indication
     Route: 048
  10. TAMSULOSIN [Concomitant]
     Active Substance: TAMSULOSIN
     Indication: Product used for unknown indication
     Route: 048
     Dates: start: 20220831

REACTIONS (7)
  - Diabetic ketoacidosis [Unknown]
  - Failure to thrive [Unknown]
  - Hyponatraemia [Unknown]
  - Cellulitis [Unknown]
  - Furuncle [Unknown]
  - Condition aggravated [Unknown]
  - Diabetes mellitus [Unknown]

NARRATIVE: CASE EVENT DATE: 20220919
